FAERS Safety Report 19247640 (Version 2)
Quarter: 2021Q2

REPORT INFORMATION
  Report Type: Spontaneous
  Country: US (occurrence: US)
  Receive Date: 20210512
  Receipt Date: 20210622
  Transmission Date: 20210717
  Serious: Yes (Hospitalization)
  Sender: FDA-Public Use
  Company Number: US-ASTRAZENECA-2021A399610

PATIENT
  Sex: Female
  Weight: 81.6 kg

DRUGS (1)
  1. SYMBICORT [Suspect]
     Active Substance: BUDESONIDE\FORMOTEROL FUMARATE DIHYDRATE
     Indication: CHRONIC OBSTRUCTIVE PULMONARY DISEASE
     Dosage: 160MCG/4.5MCG, 1 PUFF TWICE A DAY
     Route: 055
     Dates: start: 2011

REACTIONS (5)
  - Intentional device misuse [Unknown]
  - Wrong technique in device usage process [Unknown]
  - Cerebrovascular accident [Unknown]
  - Thrombosis [Unknown]
  - Device malfunction [Not Recovered/Not Resolved]
